FAERS Safety Report 10470625 (Version 3)
Quarter: 2015Q3

REPORT INFORMATION
  Report Type: Spontaneous
  Country: US (occurrence: US)
  Receive Date: 20140923
  Receipt Date: 20150821
  Transmission Date: 20151125
  Serious: Yes (Death, Hospitalization, Other)
  Sender: FDA-Public Use
  Company Number: US-009507513-1409USA010702

PATIENT
  Sex: Male

DRUGS (2)
  1. JANUVIA [Suspect]
     Active Substance: SITAGLIPTIN PHOSPHATE
     Indication: TYPE 2 DIABETES MELLITUS
     Dosage: 50 MG, QD
     Route: 048
     Dates: start: 20090429, end: 20091116
  2. JANUVIA [Suspect]
     Active Substance: SITAGLIPTIN PHOSPHATE
     Dosage: 100 MG, QD
     Route: 048
     Dates: start: 20091117, end: 2012

REACTIONS (29)
  - Hypercalcaemia [Recovered/Resolved]
  - Small intestine operation [Recovered/Resolved]
  - Neuropathy peripheral [Unknown]
  - Fatigue [Unknown]
  - Bone disorder [Unknown]
  - Hepatic cancer [Unknown]
  - Splenic vein occlusion [Unknown]
  - Asthenia [Unknown]
  - Metastases to liver [Unknown]
  - Hepatic cancer metastatic [Unknown]
  - Mental status changes [Recovered/Resolved]
  - Pulmonary artery thrombosis [Unknown]
  - Oedema peripheral [Unknown]
  - Rash [Unknown]
  - Anaphylactic reaction [Unknown]
  - Pancreatic carcinoma [Fatal]
  - Carcinoid tumour of the gastrointestinal tract [Unknown]
  - Pulmonary embolism [Unknown]
  - Adverse drug reaction [Unknown]
  - Lymphadenopathy [Unknown]
  - Pancreatic carcinoma metastatic [Unknown]
  - Dehydration [Recovered/Resolved]
  - Deep vein thrombosis [Unknown]
  - Splenic vein thrombosis [Unknown]
  - Cellulitis [Recovered/Resolved]
  - Atelectasis [Unknown]
  - Pleural effusion [Unknown]
  - Neuropathy peripheral [Unknown]
  - Colitis [Unknown]

NARRATIVE: CASE EVENT DATE: 2011
